FAERS Safety Report 12569360 (Version 1)
Quarter: 2016Q3

REPORT INFORMATION
  Report Type: Other
  Country: GB (occurrence: GB)
  Receive Date: 20160719
  Receipt Date: 20160719
  Transmission Date: 20161109
  Serious: Yes (Other)
  Sender: FDA-Public Use
  Company Number: GB-APOTEX-2008AP000224

PATIENT
  Age: 23 Year
  Sex: Female

DRUGS (21)
  1. PAROXETINE. [Suspect]
     Active Substance: PAROXETINE
     Dosage: 0.5 DF, Q.O.D.
     Route: 065
     Dates: start: 19951129
  2. AMITRIPTYLINE [Concomitant]
     Active Substance: AMITRIPTYLINE
     Indication: NEURALGIA
     Dosage: UNK
     Route: 065
     Dates: start: 20050426
  3. PAROXETINE. [Suspect]
     Active Substance: PAROXETINE
     Dosage: UNK
     Route: 065
     Dates: start: 19961122
  4. PAROXETINE. [Suspect]
     Active Substance: PAROXETINE
     Dosage: 10 MG, Q.O.D.
     Route: 065
     Dates: start: 199911, end: 200105
  5. PAROXETINE. [Suspect]
     Active Substance: PAROXETINE
     Dosage: UNK
     Route: 065
     Dates: start: 200604, end: 200606
  6. PAROXETINE. [Suspect]
     Active Substance: PAROXETINE
     Dosage: 6 ML, QD
     Route: 065
     Dates: start: 20060903
  7. PAXIL [Suspect]
     Active Substance: PAROXETINE HYDROCHLORIDE
     Indication: PRODUCT USED FOR UNKNOWN INDICATION
     Dosage: UNK
     Route: 065
  8. SERTRALINE [Concomitant]
     Active Substance: SERTRALINE HYDROCHLORIDE
     Indication: PRODUCT USED FOR UNKNOWN INDICATION
     Dosage: UNK
     Route: 065
  9. PAROXETINE. [Suspect]
     Active Substance: PAROXETINE
     Dosage: 7.5 MG, QD
     Route: 065
     Dates: start: 20060602
  10. PAROXETINE. [Suspect]
     Active Substance: PAROXETINE
     Dosage: UNK UNK, QD
     Route: 065
     Dates: start: 19970625, end: 19970820
  11. PAROXETINE. [Suspect]
     Active Substance: PAROXETINE
     Dosage: UNK
     Route: 065
     Dates: start: 200006
  12. PAROXETINE. [Suspect]
     Active Substance: PAROXETINE
     Dosage: 5 ML, QD
     Route: 065
     Dates: start: 20041204
  13. DIAZEPAM. [Concomitant]
     Active Substance: DIAZEPAM
     Indication: PRODUCT USED FOR UNKNOWN INDICATION
     Dosage: UNK
     Route: 065
  14. PAROXETINE. [Suspect]
     Active Substance: PAROXETINE
     Dosage: 30 MG, UNK
     Route: 065
     Dates: start: 199902, end: 19990630
  15. PAROXETINE. [Suspect]
     Active Substance: PAROXETINE
     Dosage: UNK
     Route: 065
     Dates: start: 20011106
  16. PAROXETINE. [Suspect]
     Active Substance: PAROXETINE
     Dosage: 20 MG, QD
     Route: 065
     Dates: start: 19991026
  17. PAROXETINE. [Suspect]
     Active Substance: PAROXETINE
     Indication: DEPRESSION
     Dosage: 10MG/5ML ORAL SUSPENSION
     Route: 048
     Dates: start: 20010613, end: 20040914
  18. PAROXETINE. [Suspect]
     Active Substance: PAROXETINE
     Indication: DEPRESSION
     Dosage: 20 MG, QD
     Route: 065
     Dates: start: 19950530, end: 20030401
  19. PAROXETINE. [Suspect]
     Active Substance: PAROXETINE
     Dosage: 0.5 DF, UNK
     Route: 065
     Dates: start: 19980701
  20. PAROXETINE. [Suspect]
     Active Substance: PAROXETINE
     Dosage: 40 MG, UNK
     Route: 065
     Dates: start: 199809
  21. PROPRANOLOL [Concomitant]
     Active Substance: PROPRANOLOL\PROPRANOLOL HYDROCHLORIDE
     Indication: PRODUCT USED FOR UNKNOWN INDICATION
     Dosage: UNK
     Route: 065

REACTIONS (22)
  - Aggression [Unknown]
  - Drug withdrawal syndrome [Unknown]
  - Feeling of despair [Unknown]
  - Decreased appetite [Unknown]
  - Thinking abnormal [Unknown]
  - Apathy [Unknown]
  - Nausea [Unknown]
  - Abdominal discomfort [Unknown]
  - Depressed mood [Unknown]
  - Depression [Unknown]
  - Headache [Unknown]
  - Tremor [Unknown]
  - Mood swings [Unknown]
  - Paraesthesia [Unknown]
  - Irritability [Unknown]
  - Suicidal ideation [Unknown]
  - Anxiety [Unknown]
  - Panic attack [Unknown]
  - Tension [Unknown]
  - Tearfulness [Unknown]
  - Fatigue [Unknown]
  - Palpitations [Unknown]

NARRATIVE: CASE EVENT DATE: 19950530
